FAERS Safety Report 18112934 (Version 1)
Quarter: 2020Q3

REPORT INFORMATION
  Report Type: Report from Study
  Country: None (occurrence: US)
  Receive Date: 20200805
  Receipt Date: 20200805
  Transmission Date: 20201103
  Serious: Yes (Hospitalization, Other)
  Sender: FDA-Public Use
  Company Number: US-ABBVIE-20K-163-3506119-00

PATIENT
  Sex: Female

DRUGS (2)
  1. HUMIRA [Suspect]
     Active Substance: ADALIMUMAB
     Indication: RHEUMATOID ARTHRITIS
     Dosage: CF PEN
     Route: 058
  2. METHOTREXATE. [Concomitant]
     Active Substance: METHOTREXATE
     Indication: PRODUCT USED FOR UNKNOWN INDICATION

REACTIONS (11)
  - Pulmonary valve disease [Unknown]
  - Joint swelling [Unknown]
  - Uveitis [Not Recovered/Not Resolved]
  - Mobility decreased [Recovering/Resolving]
  - Cardiac failure congestive [Recovered/Resolved]
  - Stress [Unknown]
  - Pneumonia [Unknown]
  - Back pain [Recovering/Resolving]
  - Aneurysm [Unknown]
  - Weight decreased [Unknown]
  - Vasculitis [Not Recovered/Not Resolved]

NARRATIVE: CASE EVENT DATE: 2010
